FAERS Safety Report 19793500 (Version 1)
Quarter: 2021Q3

REPORT INFORMATION
  Report Type: Spontaneous
  Country: CN (occurrence: CN)
  Receive Date: 20210906
  Receipt Date: 20210906
  Transmission Date: 20211014
  Serious: Yes (Hospitalization, Other)
  Sender: FDA-Public Use
  Company Number: CN-SUN PHARMACEUTICAL INDUSTRIES LTD-2021R1-310128

PATIENT
  Age: 55 Year
  Sex: Female

DRUGS (3)
  1. POTASSIUM CHLORIDE. [Suspect]
     Active Substance: POTASSIUM CHLORIDE
     Indication: PRODUCT USED FOR UNKNOWN INDICATION
     Dosage: 3 GRAM, DAILY
     Route: 065
  2. REPAGLINIDE. [Suspect]
     Active Substance: REPAGLINIDE
     Indication: TYPE 2 DIABETES MELLITUS
     Dosage: 3 MILLIGRAM, DAILY
     Route: 048
  3. MAGNESIUM CHLORIDE. [Suspect]
     Active Substance: MAGNESIUM CHLORIDE
     Indication: PRODUCT USED FOR UNKNOWN INDICATION
     Dosage: 350 MILLIGRAM, DAILY
     Route: 065

REACTIONS (3)
  - Blood magnesium abnormal [Recovered/Resolved]
  - Hypoglycaemic coma [Recovering/Resolving]
  - Blood potassium abnormal [Recovered/Resolved]
